FAERS Safety Report 6773608-6 (Version None)
Quarter: 2010Q2

REPORT INFORMATION
  Report Type: 
  Country: None (occurrence: None)
  Receive Date: 20100614
  Receipt Date: 20100608
  Transmission Date: 20101027
  Serious: Yes (Other)
  Sender: FDA-Public Use
  Company Number: 2010SP016706

PATIENT
  Age: 53 Year
  Sex: Female
  Weight: 67.1324 kg

DRUGS (8)
  1. SAPHRIS [Suspect]
     Indication: BIPOLAR DISORDER
     Dosage: 5 MG;BID;SL
     Route: 060
     Dates: start: 20100107, end: 20100216
  2. GLIPIZIDE (CON.) [Concomitant]
  3. METFORMIN (CON.) [Concomitant]
  4. CELEXA (CON.) [Concomitant]
  5. SEROQUEL (CON.) [Concomitant]
  6. XANAX (CON.) [Concomitant]
  7. BYETTA (CON.) [Concomitant]
  8. ZETIA (CON.) [Concomitant]

REACTIONS (5)
  - ANXIETY [None]
  - BLOOD GLUCOSE INCREASED [None]
  - FATIGUE [None]
  - PYREXIA [None]
  - WEIGHT INCREASED [None]
